FAERS Safety Report 18340805 (Version 5)
Quarter: 2022Q1

REPORT INFORMATION
  Report Type: Spontaneous
  Country: PT (occurrence: PT)
  Receive Date: 20201003
  Receipt Date: 20220324
  Transmission Date: 20220423
  Serious: Yes (Hospitalization, Other)
  Sender: FDA-Public Use
  Company Number: PT-GT-20201700

PATIENT
  Age: 82 Year
  Sex: Female

DRUGS (3)
  1. FLUCONAZOLE [Interacting]
     Active Substance: FLUCONAZOLE
     Indication: Vulvovaginal candidiasis
     Dosage: UNK
     Route: 048
  2. WARFARIN [Interacting]
     Active Substance: WARFARIN
     Indication: Pulmonary embolism
     Dosage: UNK
     Route: 065
  3. WARFARIN [Interacting]
     Active Substance: WARFARIN
     Indication: Anticoagulant therapy

REACTIONS (15)
  - Anticoagulation drug level above therapeutic [Recovered/Resolved]
  - Hypochromic anaemia [Recovered/Resolved]
  - Haematoma [Recovered/Resolved]
  - Ecchymosis [Recovered/Resolved]
  - Rash erythematous [Recovered/Resolved]
  - Mucosal discolouration [Recovered/Resolved]
  - Hypotension [Recovered/Resolved]
  - Asthenia [Recovered/Resolved]
  - Acute kidney injury [Recovered/Resolved]
  - Drug interaction [Recovered/Resolved]
  - Erythema [Recovered/Resolved]
  - Anaemia [Recovered/Resolved]
  - Haemorrhage [Recovered/Resolved]
  - International normalised ratio increased [Recovered/Resolved]
  - Coagulation time prolonged [Recovered/Resolved]
